FAERS Safety Report 10004486 (Version 2)
Quarter: 2014Q1

REPORT INFORMATION
  Report Type: Spontaneous
  Country: US (occurrence: US)
  Receive Date: 20140312
  Receipt Date: 20140312
  Transmission Date: 20141002
  Serious: No
  Sender: FDA-Public Use
  Company Number: US-INCYTE CORPORATION-2013IN001804

PATIENT
  Age: 62 Year
  Sex: Female
  Weight: 66.67 kg

DRUGS (9)
  1. JAKAFI [Suspect]
     Indication: MYELOFIBROSIS
     Dosage: 20 MG, BID
     Route: 048
     Dates: start: 20130308
  2. ALCOHOL [Suspect]
  3. FOLIC ACID [Concomitant]
  4. SINGULAIR [Concomitant]
  5. ASPIRIN [Concomitant]
     Dosage: 325 MG
  6. ZYRTEC [Concomitant]
  7. VITAMIN D3 [Concomitant]
  8. OSCAL D                            /00944201/ [Concomitant]
  9. FISH OIL [Concomitant]

REACTIONS (4)
  - Nausea [Recovered/Resolved]
  - Chills [Recovering/Resolving]
  - Abdominal pain [Recovering/Resolving]
  - Headache [Recovering/Resolving]
